FAERS Safety Report 6110598-3 (Version None)
Quarter: 2009Q1

REPORT INFORMATION
  Report Type: 
  Country: None (occurrence: None)
  Receive Date: 20090310
  Receipt Date: 20090226
  Transmission Date: 20090719
  Serious: Yes (Other)
  Sender: FDA-Public Use
  Company Number: US-JNJCH-2009005767

PATIENT
  Age: 30 Year
  Sex: Male
  Weight: 73.5 kg

DRUGS (1)
  1. LISTERINE WHITENING QUICK DISSOLVING STRIPS [Suspect]
     Indication: DENTAL CARE
     Dosage: TEXT:AS DIRECTED ONCE
     Route: 048
     Dates: start: 20090225, end: 20090225

REACTIONS (5)
  - APPLICATION SITE IRRITATION [None]
  - EXPIRED DRUG ADMINISTERED [None]
  - INCORRECT ROUTE OF DRUG ADMINISTRATION [None]
  - PAIN [None]
  - THROAT IRRITATION [None]
